FAERS Safety Report 4635694-9 (Version None)
Quarter: 2005Q2

REPORT INFORMATION
  Report Type: 
  Country: None (occurrence: None)
  Receive Date: 20050414
  Receipt Date: 20050330
  Transmission Date: 20051028
  Serious: Yes (Hospitalization, Other)
  Sender: FDA-Public Use
  Company Number: HQWYE154008FEB05

PATIENT
  Age: 53 Year
  Sex: Male
  Weight: 101.8 kg

DRUGS (4)
  1. RAPAMUNE [Suspect]
     Indication: PROPHYLAXIS AGAINST TRANSPLANT REJECTION
     Dosage: 6 MG 1X PER 1 DAY, ORAL; 3 MG 1X PER 1 DAY, ORAL; 2MG 1X PER 1 DAY, ORAL
     Route: 048
     Dates: start: 20040506, end: 20050131
  2. RAPAMUNE [Suspect]
     Indication: PROPHYLAXIS AGAINST TRANSPLANT REJECTION
     Dosage: 6 MG 1X PER 1 DAY, ORAL; 3 MG 1X PER 1 DAY, ORAL; 2MG 1X PER 1 DAY, ORAL
     Route: 048
     Dates: start: 20050203, end: 20050208
  3. RAPAMUNE [Suspect]
     Indication: PROPHYLAXIS AGAINST TRANSPLANT REJECTION
     Dosage: 6 MG 1X PER 1 DAY, ORAL; 3 MG 1X PER 1 DAY, ORAL; 2MG 1X PER 1 DAY, ORAL
     Route: 048
     Dates: start: 20050208
  4. STARLIX [Concomitant]

REACTIONS (4)
  - BLADDER SPASM [None]
  - BLOOD GLUCOSE INCREASED [None]
  - PLATELET COUNT ABNORMAL [None]
  - PROSTATIC HAEMORRHAGE [None]
